FAERS Safety Report 14441567 (Version 3)
Quarter: 2018Q2

REPORT INFORMATION
  Report Type: Spontaneous
  Country: FR (occurrence: FR)
  Receive Date: 20180125
  Receipt Date: 20180411
  Transmission Date: 20180711
  Serious: Yes (Hospitalization)
  Sender: FDA-Public Use
  Company Number: FR-GLAXOSMITHKLINE-FR2018GSK006857

PATIENT
  Age: 11 Month
  Sex: Male

DRUGS (1)
  1. FLIXOTIDE [Suspect]
     Active Substance: FLUTICASONE PROPIONATE
     Indication: RESPIRATORY TRACT INFECTION VIRAL
     Dosage: UNK
     Route: 055

REACTIONS (6)
  - Dyspnoea [Unknown]
  - Drug administered to patient of inappropriate age [Unknown]
  - Device ineffective [Unknown]
  - Product use in unapproved indication [Unknown]
  - Product quality issue [Unknown]
  - Lip discolouration [Unknown]

NARRATIVE: CASE EVENT DATE: 20180112
